FAERS Safety Report 14283949 (Version 1)
Quarter: 2017Q4

REPORT INFORMATION
  Report Type: Spontaneous
  Country: CA (occurrence: CA)
  Receive Date: 20171213
  Receipt Date: 20171213
  Transmission Date: 20180321
  Serious: Yes (Death, Life-Threatening, Hospitalization, Disabling)
  Sender: FDA-Public Use
  Company Number: None

PATIENT
  Sex: Female
  Weight: 49.5 kg

DRUGS (5)
  1. ADVAIR DISKUS [Suspect]
     Active Substance: FLUTICASONE PROPIONATE\SALMETEROL XINAFOATE
     Indication: BRONCHOSPASM
     Dosage: ?          QUANTITY:3 PUFF(S);?
     Route: 055
  2. ADVAIR DISKUS [Suspect]
     Active Substance: FLUTICASONE PROPIONATE\SALMETEROL XINAFOATE
     Indication: DYSPNOEA
     Dosage: ?          QUANTITY:3 PUFF(S);?
     Route: 055
  3. VENTOLIN [Suspect]
     Active Substance: ALBUTEROL SULFATE
     Indication: BRONCHIECTASIS
     Dosage: ?          QUANTITY:3 INHALATION(S);?
     Route: 055
  4. ADVAIR DISKUS [Suspect]
     Active Substance: FLUTICASONE PROPIONATE\SALMETEROL XINAFOATE
     Indication: BRONCHIECTASIS
     Dosage: ?          QUANTITY:3 PUFF(S);?
     Route: 055
  5. VENTOLIN [Suspect]
     Active Substance: ALBUTEROL SULFATE
     Indication: DYSPNOEA
     Dosage: ?          QUANTITY:3 INHALATION(S);?
     Route: 055

REACTIONS (9)
  - Bronchiectasis [None]
  - Malaise [None]
  - Hypokalaemia [None]
  - Dyspnoea [None]
  - Respiratory failure [None]
  - Loss of consciousness [None]
  - Neuromyopathy [None]
  - Contraindicated product administered [None]
  - Condition aggravated [None]

NARRATIVE: CASE EVENT DATE: 20170223
